FAERS Safety Report 5148287-4 (Version None)
Quarter: 2006Q4

REPORT INFORMATION
  Report Type: 
  Country: None (occurrence: None)
  Receive Date: 20061106
  Receipt Date: 20061020
  Transmission Date: 20070319
  Serious: Yes (Hospitalization)
  Sender: FDA-Public Use
  Company Number: 231530

PATIENT
  Sex: Female

DRUGS (3)
  1. RAPTIVA [Suspect]
     Indication: PSORIASIS
     Dosage: 83 MG, 1/WEEK, SUBCUTANEOUS
     Route: 058
     Dates: start: 20060901
  2. ACETAMINOPHEN [Concomitant]
  3. PETHIDINE (MEPERIDINE HYDROCHLORIDE) [Concomitant]

REACTIONS (5)
  - ASTHENIA [None]
  - BLOOD POTASSIUM DECREASED [None]
  - DIZZINESS [None]
  - HEADACHE [None]
  - MYALGIA [None]
